FAERS Safety Report 6398746-1 (Version None)
Quarter: 2009Q4

REPORT INFORMATION
  Report Type: 
  Country: None (occurrence: None)
  Receive Date: 20091013
  Receipt Date: 20090930
  Transmission Date: 20100525
  Serious: Yes (Hospitalization, Other)
  Sender: FDA-Public Use
  Company Number: PHEH2009US10354

PATIENT
  Sex: Female
  Weight: 64.399 kg

DRUGS (18)
  1. EXJADE [Suspect]
     Indication: MYELODYSPLASTIC SYNDROME
     Dosage: 1250 MG DAILY
     Route: 048
     Dates: start: 20090801, end: 20090806
  2. EXJADE [Suspect]
     Indication: HAEMOCHROMATOSIS
  3. PROCRIT                            /00909301/ [Concomitant]
     Indication: ANAEMIA
     Dosage: 60,000 UNITS
     Route: 058
     Dates: start: 20090625, end: 20090827
  4. ONDANSETRON HYDROCHLORIDE [Concomitant]
  5. ASPIRIN [Concomitant]
     Dosage: 81 MG DAILY
     Route: 048
  6. FLEXERIL [Concomitant]
     Dosage: UNK
     Route: 048
  7. FOLIC ACID [Suspect]
     Dosage: 1 MG, QD
     Route: 048
  8. FUROSEMIDE [Concomitant]
     Dosage: 1/2 40 MG DAILY
     Route: 048
  9. MINERAL OIL [Concomitant]
     Dosage: UNK
  10. MURO 128 [Concomitant]
     Dosage: 1 DROP DAILY
  11. TEARS NATURALE [Concomitant]
  12. NITROGLYCERIN [Concomitant]
     Dosage: 0.4 MG PRN
     Route: 060
  13. POTASSIUM CHLORIDE [Concomitant]
     Dosage: 20 MEQ DAILY
     Route: 048
  14. REFRESH PM [Concomitant]
     Dosage: UNK
  15. TETRACYCLINE [Concomitant]
     Dosage: 500 MG TWICE DAILY
  16. TOPROL-XL [Concomitant]
     Dosage: 50 MG DAILY
     Route: 048
  17. TRAVATAN [Concomitant]
     Dosage: .0004 MG DAILY
     Route: 048
  18. ZYRTEC [Concomitant]
     Dosage: UNK
     Route: 048

REACTIONS (11)
  - ABDOMINAL OPERATION [None]
  - ABDOMINAL PAIN [None]
  - ADHESIOLYSIS [None]
  - ANAEMIA [None]
  - CONSTIPATION [None]
  - HAEMOGLOBIN DECREASED [None]
  - HUMERUS FRACTURE [None]
  - MALNUTRITION [None]
  - NAUSEA [None]
  - SMALL INTESTINAL OBSTRUCTION [None]
  - VOMITING [None]
